FAERS Safety Report 6392157-0 (Version None)
Quarter: 2009Q4

REPORT INFORMATION
  Report Type: 
  Country: None (occurrence: None)
  Receive Date: 20091007
  Receipt Date: 20090925
  Transmission Date: 20100525
  Serious: Yes (Other)
  Sender: FDA-Public Use
  Company Number: US-JNJFOC-20090908716

PATIENT
  Sex: Male

DRUGS (4)
  1. TYLENOL (CAPLET) [Suspect]
  2. TYLENOL (CAPLET) [Suspect]
     Indication: TEETHING
  3. TYLENOL (CAPLET) [Suspect]
  4. TYLENOL (CAPLET) [Suspect]
     Indication: TEETHING

REACTIONS (2)
  - MALAISE [None]
  - TRANSMISSION OF AN INFECTIOUS AGENT VIA A MEDICINAL PRODUCT [None]
